FAERS Safety Report 10800289 (Version 1)
Quarter: 2015Q1

REPORT INFORMATION
  Report Type: Spontaneous
  Country: US (occurrence: US)
  Receive Date: 20150216
  Receipt Date: 20150216
  Transmission Date: 20150721
  Serious: No
  Sender: FDA-Public Use
  Company Number: US-ALLERGAN-1415182US

PATIENT
  Age: 83 Year
  Sex: Female

DRUGS (2)
  1. RESTASIS [Suspect]
     Active Substance: CYCLOSPORINE
     Indication: DRY EYE
     Dosage: 2 GTT, BID
     Route: 047
     Dates: start: 201402, end: 201405
  2. REFRESH PLUS [Suspect]
     Active Substance: CARBOXYMETHYLCELLULOSE SODIUM
     Indication: DRY EYE
     Dosage: 1 GTT OU BID-TID
     Route: 047

REACTIONS (6)
  - Eye irritation [Recovered/Resolved]
  - Eye irritation [Unknown]
  - Eye discharge [Unknown]
  - Eye pain [Unknown]
  - Ocular hyperaemia [Unknown]
  - Nasopharyngitis [Recovered/Resolved]
